FAERS Safety Report 10422462 (Version 1)
Quarter: 2014Q3

REPORT INFORMATION
  Report Type: Spontaneous
  Country: JP (occurrence: JP)
  Receive Date: 20140901
  Receipt Date: 20140901
  Transmission Date: 20150326
  Serious: Yes (Hospitalization)
  Sender: FDA-Public Use
  Company Number: JP-ELI_LILLY_AND_COMPANY-JP201408009766

PATIENT
  Age: 80 Year
  Sex: Male

DRUGS (1)
  1. HUMALOG [Suspect]
     Active Substance: INSULIN LISPRO
     Indication: DIABETES MELLITUS
     Dosage: 6 IU, UNK
     Route: 058

REACTIONS (3)
  - Pneumonia [Unknown]
  - Diabetes mellitus inadequate control [Unknown]
  - Incorrect dose administered [Unknown]
